FAERS Safety Report 9870416 (Version 1)
Quarter: 2013Q2

REPORT INFORMATION
  Report Type: Spontaneous
  Country: US (occurrence: None)
  Receive Date: 20121031
  Receipt Date: 20121031
  Transmission Date: 20140414
  Serious: No
  Sender: FDA-Public Use
  Company Number: PHEH2012US006380

PATIENT
  Age: 43 Year
  Sex: Female

DRUGS (3)
  1. GILENYA (FTY) CAPSULE, 0.5 MG [Suspect]
     Indication: MULTIPLE SCLEROSIS
     Route: 048
  2. BACLOFEN (BACLOFEN) [Concomitant]
  3. MECLIZINE (MECLOZINE) [Concomitant]

REACTIONS (4)
  - Malaise [None]
  - Tremor [None]
  - Gait disturbance [None]
  - Drug ineffective [None]
